FAERS Safety Report 7638531-3 (Version None)
Quarter: 2011Q3

REPORT INFORMATION
  Report Type: 
  Country: None (occurrence: None)
  Receive Date: 20110727
  Receipt Date: 20110722
  Transmission Date: 20111222
  Serious: Yes (Death)
  Sender: FDA-Public Use
  Company Number: PHHY2011CA52947

PATIENT
  Sex: Female

DRUGS (8)
  1. IRBESARTAN [Concomitant]
     Dosage: UNK
  2. CORDARONE [Concomitant]
     Dosage: UNK
  3. ADACAT [Concomitant]
     Dosage: UNK
  4. SYNTHROID [Concomitant]
     Dosage: UNK
  5. ZOLEDRONOC ACID [Suspect]
     Dosage: UNK
     Route: 042
     Dates: start: 20100618
  6. ZOLEDRONOC ACID [Suspect]
     Indication: OSTEOPOROSIS
     Dosage: 5 MG, UNK
     Route: 042
     Dates: start: 20090724
  7. HYDROCHLOROTHIAZIDE [Concomitant]
     Dosage: UNK
  8. COUMADIN [Concomitant]
     Dosage: UNK

REACTIONS (1)
  - DEATH [None]
